FAERS Safety Report 14100997 (Version 1)
Quarter: 2017Q4

REPORT INFORMATION
  Report Type: Spontaneous
  Country: TR (occurrence: TR)
  Receive Date: 20171018
  Receipt Date: 20171018
  Transmission Date: 20180321
  Serious: Yes (Other)
  Sender: FDA-Public Use
  Company Number: TR-ROCHE-2010741

PATIENT
  Age: 23 Year
  Sex: Male
  Weight: 87 kg

DRUGS (2)
  1. XOLAIR [Suspect]
     Active Substance: OMALIZUMAB
     Indication: PRODUCT USED FOR UNKNOWN INDICATION
     Dosage: ONCE WITHIN 4 WEEKS
     Route: 058
     Dates: start: 20170515
  2. XOLAIR [Suspect]
     Active Substance: OMALIZUMAB
     Dosage: ONCE WITHIN 4 WEEKS
     Route: 058
     Dates: start: 20170717, end: 20170717

REACTIONS (2)
  - Libido decreased [Not Recovered/Not Resolved]
  - Erectile dysfunction [Not Recovered/Not Resolved]

NARRATIVE: CASE EVENT DATE: 201707
